APPROVED DRUG PRODUCT: ABILIFY
Active Ingredient: ARIPIPRAZOLE
Strength: 5MG
Dosage Form/Route: TABLET;ORAL
Application: N021436 | Product #005 | TE Code: AB
Applicant: OTSUKA PHARMACEUTICAL CO LTD
Approved: Nov 15, 2002 | RLD: Yes | RS: No | Type: RX

PATENTS:
Patent 9125939 | Expires: Jul 28, 2026
Patent 8759350 | Expires: Mar 2, 2027